FAERS Safety Report 18853338 (Version 1)
Quarter: 2021Q1

REPORT INFORMATION
  Report Type: Report from Study
  Country: IT (occurrence: IT)
  Receive Date: 20210205
  Receipt Date: 20210205
  Transmission Date: 20210420
  Serious: Yes (Death)
  Sender: FDA-Public Use
  Company Number: IT-PFIZER INC-2021090362

PATIENT
  Age: 75 Year
  Sex: Female

DRUGS (17)
  1. POTASSIUM CHLORIDE. [Concomitant]
     Active Substance: POTASSIUM CHLORIDE
     Dosage: 20 MEQ/L
  2. IFOSFAMIDE. [Suspect]
     Active Substance: IFOSFAMIDE
     Indication: CERVIX CARCINOMA STAGE III
     Dosage: UNK, CYCLIC (5 G/M2, THREE COURSES)
     Route: 042
  3. SODIUM CHLORIDE. [Concomitant]
     Active Substance: SODIUM CHLORIDE
     Dosage: 1L
     Route: 042
  4. DEXTROSE. [Concomitant]
     Active Substance: DEXTROSE
     Indication: FLUID REPLACEMENT
     Dosage: 3 L (HYDRATION WITH 3 L OF 5%DEXTROSE SOLUTION DURING 24 HOURS WAS INFUSED SIMULTANEOUSLY)
  5. POTASSIUM CHLORIDE. [Concomitant]
     Active Substance: POTASSIUM CHLORIDE
     Indication: FLUID REPLACEMENT
     Dosage: 10 MEQ/L
  6. MESNA. [Concomitant]
     Active Substance: MESNA
     Dosage: 400 MG/M2
     Route: 040
  7. MAGNESIUM SULFATE. [Concomitant]
     Active Substance: MAGNESIUM SULFATE
     Indication: FLUID REPLACEMENT
     Dosage: 10 MEQ/L
  8. METHYLPREDNISOLONE. [Concomitant]
     Active Substance: METHYLPREDNISOLONE
     Indication: PREMEDICATION
     Dosage: 250 MG (60 MINUTES BEFORE)
     Route: 042
  9. MESNA. [Concomitant]
     Active Substance: MESNA
     Dosage: UNK (5 G/M2 WERE INFUSED INTRAVENOUSLY DURING 24 HOURS )
     Route: 042
  10. CISPLATIN. [Suspect]
     Active Substance: CISPLATIN
     Indication: CERVIX CARCINOMA STAGE III
     Dosage: 75 MG/M2, CYCLIC (ON DAY 2 AS A 60?MINUTE INFUSION)(THREE COURSES)
  11. CIMETIDINE [Concomitant]
     Active Substance: CIMETIDINE
     Indication: PREMEDICATION
     Dosage: 300 MG (30 MINUTES BEFORE TREATMENT DELIVERY)
     Route: 042
  12. SODIUM CHLORIDE. [Concomitant]
     Active Substance: SODIUM CHLORIDE
     Dosage: 1L (DURING 24 HOURS)
     Route: 042
  13. MAGNESIUM SULFATE. [Concomitant]
     Active Substance: MAGNESIUM SULFATE
     Dosage: 20 MEQ/L (GIVEN DURING 2 HOURS)
  14. CHLORPHENIRAMINE HYDROCHLORIDE. [Concomitant]
     Active Substance: CHLORPHENIRAMINE HYDROCHLORIDE
     Indication: PREMEDICATION
     Dosage: 10 MG
     Route: 042
  15. SODIUM CHLORIDE. [Concomitant]
     Active Substance: SODIUM CHLORIDE
     Indication: FLUID REPLACEMENT
     Dosage: 1L
     Route: 042
  16. PACLITAXEL. [Suspect]
     Active Substance: PACLITAXEL
     Indication: CERVIX CARCINOMA STAGE III
     Dosage: 175 MG/M2, CYCLIC (3?HOUR INFUSION)(THREE COURSES)
  17. MESNA. [Concomitant]
     Active Substance: MESNA
     Dosage: UNK (3 G/M2)
     Route: 042

REACTIONS (3)
  - Renal failure [Fatal]
  - Thrombocytopenia [Fatal]
  - Neutropenia [Fatal]
